FAERS Safety Report 22262057 (Version 4)
Quarter: 2024Q1

REPORT INFORMATION
  Report Type: Spontaneous
  Country: CA (occurrence: CA)
  Receive Date: 20230428
  Receipt Date: 20240208
  Transmission Date: 20240410
  Serious: Yes (Life-Threatening, Hospitalization, Other)
  Sender: FDA-Public Use
  Company Number: CA-BAXTER-2023BAX019691

PATIENT
  Age: 35 Year
  Sex: Female

DRUGS (87)
  1. ONDANSETRON [Suspect]
     Active Substance: ONDANSETRON
     Indication: Morning sickness
     Dosage: 4 MILIGRAM AT AN UNSPECIFIED FREQUENCY
     Route: 042
  2. ONDANSETRON [Suspect]
     Active Substance: ONDANSETRON
     Indication: Hyperemesis gravidarum
     Dosage: 8.0 MILLIGRAM (DOSAGE FORM: NOT SPECIFIED) AT AN UNSPECIFIED FREQUENCY
     Route: 042
  3. ONDANSETRON [Suspect]
     Active Substance: ONDANSETRON
     Indication: Nausea
     Dosage: 8.0 MILLIGRAM, 1 EVERY 8 HOURS (DOSAGE FORM: NOT SPECIFIED)
     Route: 042
  4. ONDANSETRON [Suspect]
     Active Substance: ONDANSETRON
     Indication: Vomiting
     Dosage: AT UNSPECIFIED DOSE AND FREQUENCY
     Route: 065
  5. ONDANSETRON [Suspect]
     Active Substance: ONDANSETRON
     Indication: Antiemetic supportive care
     Dosage: 8.0 MILLIGRAM (DOSAGE FORM: NOT SPECIFIED) AT AN UNSPECIFIED FREQUENCY
     Route: 065
  6. BUPIVACAINE [Suspect]
     Active Substance: BUPIVACAINE
     Indication: Product used for unknown indication
     Dosage: 1.8 MILLILITER AT AN UNSPECIFIED FREQUENCY (DOSAGE FORM: UNKNOWN)
     Route: 065
  7. BUPIVACAINE [Suspect]
     Active Substance: BUPIVACAINE
     Dosage: 2.0 ML, AT AN UNSPECIFIED FREQUENCY
     Route: 065
  8. SODIUM BICARBONATE [Suspect]
     Active Substance: SODIUM BICARBONATE
     Indication: Sinus tachycardia
     Dosage: (DOSAGE FORM: NOT SPECIFIED), UNSPECIFIED DOSE AND FREQUENCY
     Route: 065
  9. DEXTROSE [Suspect]
     Active Substance: DEXTROSE\DEXTROSE MONOHYDRATE
     Indication: Sinus tachycardia
     Dosage: (DOSAGE FORM: NOT SPECIFIED), UNSPECIFIED DOSE AND FREQUENCY
     Route: 065
  10. AZITHROMYCIN [Suspect]
     Active Substance: AZITHROMYCIN
     Indication: Product used for unknown indication
  11. FENTANYL [Suspect]
     Active Substance: FENTANYL\FENTANYL CITRATE
     Indication: Product used for unknown indication
     Dosage: 10 MICROGRAM (DOSAGE FORM: NOT SPECIFIED )
     Route: 065
  12. FENTANYL [Suspect]
     Active Substance: FENTANYL\FENTANYL CITRATE
     Dosage: UNK
     Route: 065
  13. FENTANYL [Suspect]
     Active Substance: FENTANYL\FENTANYL CITRATE
     Indication: Product used for unknown indication
     Dosage: 10.0 MICROGRAM, AT AN UNSPECIFIED FREQUENCY (DOSAGE FORM: NOT SPECIFIED)
     Route: 065
  14. FENTANYL [Suspect]
     Active Substance: FENTANYL\FENTANYL CITRATE
     Dosage: 10.0 MILLIGRAM, AT AN UNSPECIFIED FREQUENCY (DOSAGE FORM: NOT SPECIFIED)
     Route: 065
  15. FLUTICASONE [Suspect]
     Active Substance: FLUTICASONE
     Indication: Product used for unknown indication
     Dosage: AT AN UNSPECIFIED DOSE AND FREQUENCY, DOSAGE FORM: NOT SPECIFIED
     Route: 065
  16. FLUTICASONE [Suspect]
     Active Substance: FLUTICASONE
     Dosage: UNK
     Route: 065
  17. LEVOTHYROXINE SODIUM [Suspect]
     Active Substance: LEVOTHYROXINE SODIUM
     Indication: Product used for unknown indication
     Dosage: 125 MICROGRAM, 1 EVERY 1 DAY, DOSAGE FORM: NOT SPECIFIED
     Route: 065
  18. LEVOTHYROXINE SODIUM [Suspect]
     Active Substance: LEVOTHYROXINE SODIUM
     Dosage: 1 EVERY 1 DAYS (AT AN UNSPECIFIED DOSE)
     Route: 065
  19. MORPHINE SULFATE [Suspect]
     Active Substance: MORPHINE SULFATE
     Indication: Product used for unknown indication
     Dosage: 100 MICROGRAM AT AN UNSPECIFIED FREQUENCY, DOSAGE FORM: NOT SPECIFIED
     Route: 065
  20. MORPHINE SULFATE [Suspect]
     Active Substance: MORPHINE SULFATE
     Dosage: UNK
     Route: 065
  21. MORPHINE SULFATE [Suspect]
     Active Substance: MORPHINE SULFATE
     Dosage: 100 MILLIGRAM AT AN UNSPECIFIED FREQUENCY, DOSAGE FORM: NOT SPECIFIED
     Route: 065
  22. OMEPRAZOLE [Suspect]
     Active Substance: OMEPRAZOLE
     Indication: Product used for unknown indication
     Dosage: 40 MILLIGRAM, 1 EVERY 1 DAY, DOSAGE FORM: NOT SPECIFIED
     Route: 048
  23. OXYTOCIN [Suspect]
     Active Substance: OXYTOCIN
     Indication: Uterine contractions during pregnancy
     Dosage: AT AN UNSPECIFIED DOSE AND FREQUENCY, DOSAGE FORM: NOT SPECIFIED
     Route: 042
  24. OXYTOCIN [Suspect]
     Active Substance: OXYTOCIN
     Indication: Uterine contractions during pregnancy
     Route: 042
  25. PHENYLEPHRINE HYDROCHLORIDE [Suspect]
     Active Substance: PHENYLEPHRINE HYDROCHLORIDE
     Indication: Product used for unknown indication
     Dosage: 650 MICROGRAM AT AN UNSPECIFIED FREQUENCY, DOSAGE FORM: NOT SPECIFIED
     Route: 042
  26. PHENYLEPHRINE [Suspect]
     Active Substance: PHENYLEPHRINE HYDROCHLORIDE
     Indication: Product used for unknown indication
     Dosage: AT AN UNSPECIFIED DOSE AND FREQUENCY (DOSAGE FORM: SOLUTION OPHTHALMIC)
     Route: 042
  27. AZITHROMYCIN ANHYDROUS [Suspect]
     Active Substance: AZITHROMYCIN ANHYDROUS
     Indication: Product used for unknown indication
     Dosage: AT AN UNSPECIFIED DOSE AND FREQUENCY, DOSAGE FORM: NOT SPECIFIED
  28. ALBUTEROL [Suspect]
     Active Substance: ALBUTEROL
     Indication: Product used for unknown indication
     Dosage: AT AN UNSPECIFIED DOSE AND FREQUENCY, DOSAGE FORM: NOT SPECIFIED
  29. SALMETEROL XINAFOATE [Suspect]
     Active Substance: SALMETEROL XINAFOATE
     Indication: Product used for unknown indication
  30. TOBRAMYCIN [Suspect]
     Active Substance: TOBRAMYCIN
     Indication: Product used for unknown indication
     Dosage: AT AN UNSPECIFIED DOSE AND FREQUENCY, DOSAGE FORM: NOT SPECIFIED
  31. TOBRAMYCIN SULFATE [Suspect]
     Active Substance: TOBRAMYCIN SULFATE
     Indication: Product used for unknown indication
  32. SEREVENT DISKUS [Suspect]
     Active Substance: SALMETEROL XINAFOATE
     Indication: Product used for unknown indication
     Dosage: AT AN UNSPECIFIED DOSE AND FREQUENCY, DOSAGE FORM: NOT SPECIFIED
  33. ACETAMINOPHEN [Suspect]
     Active Substance: ACETAMINOPHEN
     Indication: Body temperature increased
     Dosage: 1.0 GRAM (DOSAGE FORM: NOT SPECIFIED)
     Route: 048
  34. DIMENHYDRINATE [Suspect]
     Active Substance: DIMENHYDRINATE
     Indication: Morning sickness
     Dosage: 50.0 MILLIGRAM (DOSAGE FORM: NOT SPECIFIED)
     Route: 042
  35. DIMENHYDRINATE [Suspect]
     Active Substance: DIMENHYDRINATE
     Indication: Hyperemesis gravidarum
     Dosage: (DOSAGE FORM: NOT SPECIFIED) AT AN UNSPECIFIED DOSE AND FREQUENCY
     Route: 065
  36. DIMENHYDRINATE [Suspect]
     Active Substance: DIMENHYDRINATE
     Indication: Vomiting
     Dosage: DOSAGE FORM: UNKNOWN) AT AN UNSPECIFIED DOSE AND FREQUENCY
     Route: 048
  37. DIMENHYDRINATE [Suspect]
     Active Substance: DIMENHYDRINATE
     Indication: Nausea
     Dosage: 50.0 MILLIGRAM, 1 EVERY 4 HOURS (DOSAGE FORM: NOT SPECIFIED)
     Route: 042
  38. DIMENHYDRINATE [Suspect]
     Active Substance: DIMENHYDRINATE
     Indication: Antiemetic supportive care
     Dosage: 50.0 MILLIGRAM 1 EVERY 4 HOURS
     Route: 042
  39. DIMENHYDRINATE [Suspect]
     Active Substance: DIMENHYDRINATE
     Dosage: (DOSAGE FORM: NOT SPECIFIED), UNSPCIFED DOSE AND AS REQUIRED
     Route: 065
  40. DIMENHYDRINATE [Suspect]
     Active Substance: DIMENHYDRINATE
     Dosage: UNK
     Route: 065
  41. DOXYLAMINE SUCCINATE\PYRIDOXINE HYDROCHLORIDE [Suspect]
     Active Substance: DOXYLAMINE SUCCINATE\PYRIDOXINE HYDROCHLORIDE
     Indication: Product used for unknown indication
     Dosage: 10.0 MILLIGRAM, AT AN UNSPECIFIED FREQUENCY
     Route: 048
  42. DOXYLAMINE SUCCINATE\PYRIDOXINE HYDROCHLORIDE [Suspect]
     Active Substance: DOXYLAMINE SUCCINATE\PYRIDOXINE HYDROCHLORIDE
     Indication: Morning sickness
     Dosage: 20.0 MILLIGRAM, AT AN UNSPECIFIED FREQUENCY
     Route: 048
  43. FAMOTIDINE [Suspect]
     Active Substance: FAMOTIDINE
     Indication: Morning sickness
     Dosage: 20.0 MILLIGRAM (DOSAGE FORM: NOT SPECIFIED) AT AN UNSPECIFIED FREQUENCY
     Route: 042
  44. FAMOTIDINE [Suspect]
     Active Substance: FAMOTIDINE
     Indication: Hyperemesis gravidarum
     Dosage: 20.0 MILLIGRAM, 1 EVERY 1 DAYS (DOSAGE FORM: NOT SPECIFIED)
     Route: 042
  45. FAMOTIDINE [Suspect]
     Active Substance: FAMOTIDINE
     Indication: Nausea
     Dosage: DOSAGE FORM: NOT SPECIFIED) AT AN UNSPECIFIED DOSE AND FREQUENCY
     Route: 042
  46. FAMOTIDINE [Suspect]
     Active Substance: FAMOTIDINE
     Indication: Vomiting
     Dosage: (DOSAGE FORM: UNKNOWN) AT AN UNSPECIFIED DOSE AND FREQUENCY
     Route: 048
  47. FAMOTIDINE [Suspect]
     Active Substance: FAMOTIDINE
     Dosage: 20.0 MILLIGRAM 1 EVERY 1 DAYS
     Route: 042
  48. FAMOTIDINE [Suspect]
     Active Substance: FAMOTIDINE
     Dosage: UNK
     Route: 065
  49. DOXYLAMINE SUCCINATE AND PYRIDOXINE HYDROCHLORIDE [Suspect]
     Active Substance: DOXYLAMINE SUCCINATE\PYRIDOXINE HYDROCHLORIDE
     Indication: Morning sickness
     Dosage: 10.0 MILLIGRAM 4 EVERY 1 DAYS (DOSAGE FORM: TABLET DELAYED- RELEASE)
     Route: 048
  50. DOXYLAMINE SUCCINATE AND PYRIDOXINE HYDROCHLORIDE [Suspect]
     Active Substance: DOXYLAMINE SUCCINATE\PYRIDOXINE HYDROCHLORIDE
     Indication: Hyperemesis gravidarum
  51. PROCHLORPERAZINE [Suspect]
     Active Substance: PROCHLORPERAZINE
     Indication: Morning sickness
     Dosage: 10.0 MILLIGRAM, 4 EVERY 1 DAYS (DOSAGE FORM: NOT SPECIFIED)
     Route: 048
  52. PROCHLORPERAZINE [Suspect]
     Active Substance: PROCHLORPERAZINE
     Indication: Nausea
     Dosage: 5.0 MILLIGRAM, 4 EVERY 1 DAYS (DOSAGE FORM: NOT SPECIFIED)
     Route: 048
  53. PROCHLORPERAZINE [Suspect]
     Active Substance: PROCHLORPERAZINE
     Indication: Hyperemesis gravidarum
     Dosage: 10.0 MILLIGRAM, AT AN UNSPECIFIED FREQUENCY
     Route: 048
  54. PROCHLORPERAZINE [Suspect]
     Active Substance: PROCHLORPERAZINE
     Indication: Vomiting
     Dosage: 5.0 MILLIGRAM (DOSAGE FORM: NOT SPECIFIED) AT AN UNSPECIFIED FREQUENCY
     Route: 048
  55. PROCHLORPERAZINE [Suspect]
     Active Substance: PROCHLORPERAZINE
     Indication: Antiemetic supportive care
     Dosage: 5.0 MILLIGRAM, 1 EVERY 6 HOURS (DOSAGE FORM: NOT SPECIFIED) (THERAPY DURATION: 2.0 DAYS)
     Route: 048
  56. PROCHLORPERAZINE [Suspect]
     Active Substance: PROCHLORPERAZINE
     Dosage: AT AN UNSPECIFIED DOSE AND FREQUENCY (THERAPY DURATION: 2.0 DAYS)
     Route: 065
  57. PROCHLORPERAZINE [Suspect]
     Active Substance: PROCHLORPERAZINE
     Dosage: 10.0 MILLIGRAM, 1 EVERY 6 HOURS (THERAPY DURATION: 2.0 DAYS) (DOSAGE FORM: UNKNOWN)
     Route: 048
  58. PROCHLORPERAZINE [Suspect]
     Active Substance: PROCHLORPERAZINE
     Dosage: 5.0 MILLIGRAM 4 EVERY 1 DAYS
     Route: 048
  59. PROCHLORPERAZINE [Suspect]
     Active Substance: PROCHLORPERAZINE
     Dosage: 5.0 MILLIGRAM, 1 EVERY 6 HOURS
     Route: 048
  60. PROCHLORPERAZINE [Suspect]
     Active Substance: PROCHLORPERAZINE
     Dosage: 5.0 MILLIGRAM, 1 EVERY 6 HOURS (DOSAGE FORM: NOT SPECIFIED)
     Route: 048
  61. SUMATRIPTAN SUCCINATE [Suspect]
     Active Substance: SUMATRIPTAN SUCCINATE
     Indication: Product used for unknown indication
     Route: 065
  62. SUMATRIPTAN SUCCINATE [Suspect]
     Active Substance: SUMATRIPTAN SUCCINATE
     Indication: Migraine
     Dosage: 50.0 MILLIGRAM, AT AN UNSPECIFIED FREQUENCY (DOSAGE FORM: UNKNOWN)
     Route: 048
  63. SUMATRIPTAN SUCCINATE [Suspect]
     Active Substance: SUMATRIPTAN SUCCINATE
     Dosage: 50.0 MILLIGRAM, AT AN UNSPECIFIED FREQUENCY
     Route: 048
  64. SUMATRIPTAN SUCCINATE [Suspect]
     Active Substance: SUMATRIPTAN SUCCINATE
     Dosage: 50.0 MILLIGRAM, 1 EVERY 6 HOURS
     Route: 048
  65. DOXYLAMINE SUCCINATE\PYRIDOXINE HYDROCHLORIDE [Suspect]
     Active Substance: DOXYLAMINE SUCCINATE\PYRIDOXINE HYDROCHLORIDE
     Indication: Hyperemesis gravidarum
     Dosage: 40.0 MILLIGRAM, 1 EVERY 1 DAYS
     Route: 048
  66. DOXYLAMINE SUCCINATE\PYRIDOXINE HYDROCHLORIDE [Suspect]
     Active Substance: DOXYLAMINE SUCCINATE\PYRIDOXINE HYDROCHLORIDE
     Indication: Vomiting
     Dosage: 20.0 MILLIGRAM, 1 EVERY 1 DAYS (DOSAGE FORM: UNKNOWN)
     Route: 048
  67. DOXYLAMINE SUCCINATE\PYRIDOXINE HYDROCHLORIDE [Suspect]
     Active Substance: DOXYLAMINE SUCCINATE\PYRIDOXINE HYDROCHLORIDE
     Indication: Nausea
     Dosage: 10.0 MILLIGRAM, 1 EVERY 12 HOURS
     Route: 048
  68. DOXYLAMINE SUCCINATE\PYRIDOXINE HYDROCHLORIDE [Suspect]
     Active Substance: DOXYLAMINE SUCCINATE\PYRIDOXINE HYDROCHLORIDE
     Dosage: 1 DOSAGE FORMS, 1 EVERY 1 DAYS
     Route: 048
  69. SUMATRIPTAN [Suspect]
     Active Substance: SUMATRIPTAN
     Indication: Migraine
     Dosage: (DOSAGE FORM: NOT SPECIFIED) AT AN UNSPECIFIED DOSE AND FREQUENCY
     Route: 065
  70. SUMATRIPTAN [Suspect]
     Active Substance: SUMATRIPTAN
     Dosage: 1.0 DOSAGE FORMS, AT AN UNSPECIFIED FREQUENCY
     Route: 048
  71. SUMATRIPTAN [Suspect]
     Active Substance: SUMATRIPTAN
     Dosage: 50.0 MILLIGRAM AT UNSPECIFIED FREQUENCY
     Route: 048
  72. SUMATRIPTAN [Suspect]
     Active Substance: SUMATRIPTAN
     Dosage: 1.0 DOSAGE FORMS, TOTAL
     Route: 065
  73. PYRIDOXINE [Suspect]
     Active Substance: PYRIDOXINE
     Indication: Vomiting
     Dosage: 3 EVERY 1 DAYS AT UNSPECIFIED DOSE
     Route: 048
  74. PYRIDOXINE [Suspect]
     Active Substance: PYRIDOXINE
     Indication: Nausea
     Dosage: 1.0 DOSAGE FORMS (DOSAGE FORM: NOT SPECIFIED)
     Route: 048
  75. PYRIDOXINE [Suspect]
     Active Substance: PYRIDOXINE
     Indication: Morning sickness
     Dosage: 30 MILLIGRAMS, 3 EVERY 1 DAYS (DOSAGE FORM: NOT SPECIFIED)
     Route: 048
  76. PYRIDOXINE [Suspect]
     Active Substance: PYRIDOXINE
     Indication: Antiemetic supportive care
     Dosage: UNK
     Route: 065
  77. LORAZEPAM [Suspect]
     Active Substance: LORAZEPAM
     Indication: Product used for unknown indication
     Dosage: 2.0 GRAM DOSAGE FORM: NOT SPECIFIED)
     Route: 042
  78. LORAZEPAM [Suspect]
     Active Substance: LORAZEPAM
     Dosage: 1.0 GRAM AT UNSPECIFIED FREQUENCY
     Route: 042
  79. LORAZEPAM [Suspect]
     Active Substance: LORAZEPAM
     Dosage: 1.0 MILLIGRAM AT UNSPECIFIED FREQUENCY
     Route: 048
  80. DOXYLAMINE SUCCINATE [Suspect]
     Active Substance: DOXYLAMINE SUCCINATE
     Indication: Nausea
     Dosage: 1.0 DOSAGE FORMS AT UNSPECIFIED FREQUENCY
     Route: 048
  81. DOXYLAMINE SUCCINATE [Suspect]
     Active Substance: DOXYLAMINE SUCCINATE
     Indication: Vomiting
     Dosage: 3 EVERY 1 DAYS AT UNSPECIFIED DOSE
     Route: 048
  82. DOXYLAMINE SUCCINATE [Suspect]
     Active Substance: DOXYLAMINE SUCCINATE
     Indication: Morning sickness
     Dosage: 30 MILLIGRAMS 3 EVERY 1 DAYS
     Route: 048
  83. DOXYLAMINE SUCCINATE [Suspect]
     Active Substance: DOXYLAMINE SUCCINATE
     Indication: Antiemetic supportive care
     Dosage: UNK
     Route: 065
  84. ONDANSETRON [Suspect]
     Active Substance: ONDANSETRON
     Indication: Morning sickness
     Route: 065
  85. ONDANSETRON [Suspect]
     Active Substance: ONDANSETRON
     Indication: Hyperemesis gravidarum
  86. DOXYLAMINE SUCCINATE AND PYRIDOXINE HYDROCHLORIDE [Suspect]
     Active Substance: DOXYLAMINE SUCCINATE\PYRIDOXINE HYDROCHLORIDE
     Indication: Morning sickness
     Dosage: UNK
     Route: 065
  87. DOXYLAMINE SUCCINATE AND PYRIDOXINE HYDROCHLORIDE [Suspect]
     Active Substance: DOXYLAMINE SUCCINATE\PYRIDOXINE HYDROCHLORIDE
     Indication: Hyperemesis gravidarum

REACTIONS (25)
  - Ventilation perfusion mismatch [Recovering/Resolving]
  - Abortion spontaneous [Recovered/Resolved]
  - Clonus [Not Recovered/Not Resolved]
  - Drug ineffective [Not Recovered/Not Resolved]
  - Emotional distress [Not Recovered/Not Resolved]
  - Exposure during pregnancy [Recovered/Resolved]
  - Extensor plantar response [Not Recovered/Not Resolved]
  - Foetal heart rate abnormal [Not Recovered/Not Resolved]
  - Hyperhidrosis [Not Recovered/Not Resolved]
  - Hypertonia [Not Recovered/Not Resolved]
  - Muscle contractions involuntary [Not Recovered/Not Resolved]
  - Muscle spasticity [Not Recovered/Not Resolved]
  - Myalgia [Not Recovered/Not Resolved]
  - Sinus tachycardia [Not Recovered/Not Resolved]
  - Drug ineffective for unapproved indication [Recovered/Resolved]
  - Therapy non-responder [Recovered/Resolved]
  - Off label use [Recovered/Resolved]
  - Hypoxia [Recovering/Resolving]
  - Maternal exposure during pregnancy [Recovering/Resolving]
  - Serotonin syndrome [Recovered/Resolved]
  - Hyperreflexia [Not Recovered/Not Resolved]
  - Tachycardia [Not Recovered/Not Resolved]
  - Tremor [Not Recovered/Not Resolved]
  - Pyrexia [Not Recovered/Not Resolved]
  - Anaphylactic reaction [Recovered/Resolved]
